FAERS Safety Report 9761556 (Version 2)
Quarter: 2014Q3

REPORT INFORMATION
  Report Type: Spontaneous
  Country: US (occurrence: US)
  Receive Date: 20131216
  Receipt Date: 20140826
  Transmission Date: 20150326
  Serious: Yes (Hospitalization, Other)
  Sender: FDA-Public Use
  Company Number: US-009507513-1312USA007088

PATIENT
  Sex: Female

DRUGS (1)
  1. NUVARING [Suspect]
     Active Substance: ETHINYL ESTRADIOL\ETONOGESTREL
     Dosage: UNK
     Route: 067
     Dates: start: 20110822

REACTIONS (7)
  - Hypercoagulation [Unknown]
  - Pulmonary embolism [Unknown]
  - Venous thrombosis [Unknown]
  - Thrombosis [Unknown]
  - Deep vein thrombosis [Unknown]
  - Antiphospholipid syndrome [Unknown]
  - Deep vein thrombosis [Unknown]

NARRATIVE: CASE EVENT DATE: 2011
